FAERS Safety Report 6611351-4 (Version None)
Quarter: 2010Q1

REPORT INFORMATION
  Report Type: 
  Country: None (occurrence: None)
  Receive Date: 20100301
  Receipt Date: 20100301
  Transmission Date: 20100710
  Serious: No
  Sender: FDA-Public Use
  Company Number: None

PATIENT
  Age: 76 Year
  Sex: Female

DRUGS (2)
  1. OMEPRAZOLE [Suspect]
     Indication: BARRETT'S OESOPHAGUS
     Dosage: TAKE 2 CAPSULES IN THE MORNING AS DIRECTED (BUT PATIENT SAYS SHE TAKE ONLY 1 DAILY)
  2. OMEPRAZOLE [Suspect]
     Indication: GASTROOESOPHAGEAL REFLUX DISEASE
     Dosage: TAKE 2 CAPSULES IN THE MORNING AS DIRECTED (BUT PATIENT SAYS SHE TAKE ONLY 1 DAILY)

REACTIONS (1)
  - DYSPNOEA [None]
